FAERS Safety Report 6449095-4 (Version None)
Quarter: 2009Q4

REPORT INFORMATION
  Report Type: 
  Country: None (occurrence: None)
  Receive Date: 20091120
  Receipt Date: 20091110
  Transmission Date: 20100525
  Serious: Yes (Hospitalization)
  Sender: FDA-Public Use
  Company Number: US-JNJFOC-20091103382

PATIENT
  Sex: Male

DRUGS (6)
  1. DOXIL [Suspect]
     Indication: MULTIPLE MYELOMA
     Route: 042
  2. VELCADE [Suspect]
     Indication: MULTIPLE MYELOMA
     Route: 042
  3. THALOMID [Suspect]
     Route: 048
     Dates: start: 20081115, end: 20081228
  4. THALOMID [Suspect]
     Indication: MULTIPLE MYELOMA
     Dosage: FOR 2 WEEKS
     Route: 048
     Dates: start: 20081115, end: 20081228
  5. CYTOXAN [Suspect]
     Indication: MULTIPLE MYELOMA
     Dosage: 700-1000MG/M2 EVERY OTHER WEEK
     Route: 042
  6. PAMIDRONATE DISODIUM [Concomitant]
     Route: 065

REACTIONS (3)
  - ATRIAL THROMBOSIS [None]
  - NEUROPATHY PERIPHERAL [None]
  - THROMBOCYTOPENIA [None]
